FAERS Safety Report 8138098-X (Version None)
Quarter: 2012Q1

REPORT INFORMATION
  Report Type: 
  Country: None (occurrence: None)
  Receive Date: 20120215
  Receipt Date: 20120215
  Transmission Date: 20120608
  Serious: No
  Sender: FDA-Public Use
  Company Number: None

PATIENT
  Age: 73 Year
  Sex: Male
  Weight: 70.306 kg

DRUGS (1)
  1. TAMSULOSIN HCL [Suspect]
     Indication: PROSTATIC DISORDER
     Dosage: ONE PILL
     Route: 048
     Dates: start: 20110301, end: 20120210

REACTIONS (3)
  - PRODUCT QUALITY ISSUE [None]
  - PROSTATITIS [None]
  - PRODUCT SUBSTITUTION ISSUE [None]
